FAERS Safety Report 25405020 (Version 1)
Quarter: 2025Q2

REPORT INFORMATION
  Report Type: Spontaneous
  Country: JP (occurrence: JP)
  Receive Date: 20250606
  Receipt Date: 20250606
  Transmission Date: 20250717
  Serious: Yes (Death, Other)
  Sender: RANBAXY
  Company Number: JP-SUN PHARMACEUTICAL INDUSTRIES LTD-2025R1-510283

PATIENT
  Age: 64 Year
  Sex: Male

DRUGS (3)
  1. ISOSORBIDE [Suspect]
     Active Substance: ISOSORBIDE
     Indication: Coronary artery aneurysm
     Route: 065
  2. NICORANDIL [Suspect]
     Active Substance: NICORANDIL
     Indication: Coronary artery aneurysm
     Route: 065
  3. SODIUM NITROPRUSSIDE [Suspect]
     Active Substance: SODIUM NITROPRUSSIDE
     Indication: Coronary artery aneurysm
     Route: 065

REACTIONS (3)
  - Drug ineffective [Unknown]
  - Pneumothorax [Fatal]
  - Pneumonia [Fatal]
